FAERS Safety Report 15842643 (Version 1)
Quarter: 2019Q1

REPORT INFORMATION
  Report Type: Spontaneous
  Country: US (occurrence: US)
  Receive Date: 20190118
  Receipt Date: 20190118
  Transmission Date: 20190417
  Serious: Yes (Death)
  Sender: FDA-Public Use
  Company Number: US-PURDUE-USA-2019-0145689

PATIENT
  Sex: Female

DRUGS (1)
  1. DRONABINOL CAPSULES [Suspect]
     Active Substance: DRONABINOL
     Indication: NAUSEA
     Dosage: 2.5 MG, UNK
     Route: 048

REACTIONS (1)
  - Death [Fatal]
